FAERS Safety Report 9620830 (Version 1)
Quarter: 2013Q4

REPORT INFORMATION
  Report Type: Spontaneous
  Country: BR (occurrence: BR)
  Receive Date: 20131015
  Receipt Date: 20131015
  Transmission Date: 20140711
  Serious: Yes (Other)
  Sender: FDA-Public Use
  Company Number: BR-ACCORD-019894

PATIENT
  Age: 74 Year
  Sex: Female
  Weight: 51.8 kg

DRUGS (7)
  1. RANITIDINE [Concomitant]
     Route: 042
     Dates: start: 20130910, end: 20130910
  2. NAUSETRON [Concomitant]
     Route: 042
     Dates: start: 20130910, end: 20130910
  3. PACLITAXEL [Suspect]
     Indication: BREAST CANCER FEMALE
     Route: 042
     Dates: start: 20130910, end: 20130910
  4. LORAZEPAN [Concomitant]
  5. DIFENIDRIN [Concomitant]
  6. UNIDEXA [Concomitant]
     Route: 042
     Dates: start: 20130910, end: 20130910
  7. SALINE [Concomitant]
     Dosage: SF 500ML (1 BAG)
     Route: 042
     Dates: start: 20130910, end: 20130910

REACTIONS (4)
  - Erythema [Recovered/Resolved]
  - Malaise [Recovered/Resolved]
  - Hypertension [Recovered/Resolved]
  - Myalgia [Recovered/Resolved]
